FAERS Safety Report 7626221-2 (Version None)
Quarter: 2011Q3

REPORT INFORMATION
  Report Type: 
  Country: None (occurrence: None)
  Receive Date: 20110721
  Receipt Date: 20110719
  Transmission Date: 20111222
  Serious: Yes (Death, Other)
  Sender: FDA-Public Use
  Company Number: BR-ABBOTT-11P-020-0840494-00

PATIENT
  Sex: Female
  Weight: 90 kg

DRUGS (6)
  1. OMEPRAZOLE [Concomitant]
     Indication: PROPHYLAXIS AGAINST GASTROINTESTINAL ULCER
     Route: 048
     Dates: start: 20010101
  2. CHLOROQUINE 250MG/ PARACETAMOL 300MG/ RANITIDINE 150MG [Concomitant]
     Indication: RHEUMATOID ARTHRITIS
     Route: 048
  3. MICARDIS [Concomitant]
     Indication: HYPERTENSION
     Route: 048
     Dates: start: 20100101
  4. TELMISARTAN/HYDROCHLOROTHIAZIDE (MICARDIS HCT) [Concomitant]
     Indication: HYPERTENSION
     Dosage: 1- 40/12.5MG TABLET PER DAY
     Route: 048
     Dates: start: 20060101
  5. CARVEDILOL [Concomitant]
     Indication: CARDIAC FAILURE CONGESTIVE
     Route: 048
     Dates: start: 20101101
  6. HUMIRA [Suspect]
     Indication: RHEUMATOID ARTHRITIS
     Route: 058
     Dates: start: 20100125

REACTIONS (2)
  - RENAL IMPAIRMENT [None]
  - INFARCTION [None]
